FAERS Safety Report 4576971-X (Version None)
Quarter: 2005Q1

REPORT INFORMATION
  Report Type: 
  Country: None (occurrence: None)
  Receive Date: 20050208
  Receipt Date: 20050128
  Transmission Date: 20050727
  Serious: Yes (Hospitalization)
  Sender: FDA-Public Use
  Company Number: 211793

PATIENT
  Age: 77 Year
  Sex: Male
  Weight: 92.1 kg

DRUGS (8)
  1. AVASTIN [Suspect]
     Indication: COLORECTAL CANCER METASTATIC
     Dosage: 5 MG. Q2W, INTRAVENOUS
     Route: 042
     Dates: start: 20041101
  2. AVASTIN [Suspect]
  3. DIGOXIN [Concomitant]
  4. LASIX [Concomitant]
  5. METOPROLOL TARTRATE [Concomitant]
  6. NIFEREX (POLYSACCHARIDE IRON COMPLEX) [Concomitant]
  7. PEPCID AC [Concomitant]
  8. MEGACE [Concomitant]

REACTIONS (14)
  - ATRIAL FIBRILLATION [None]
  - ATROPHY [None]
  - BLOOD CREATININE INCREASED [None]
  - BLOOD GLUCOSE INCREASED [None]
  - BLOOD POTASSIUM DECREASED [None]
  - BLOOD PRESSURE INCREASED [None]
  - CEREBRAL ATROPHY [None]
  - COMA [None]
  - CONVULSION [None]
  - GRAND MAL CONVULSION [None]
  - MENINGITIS [None]
  - MYOCARDIAL INFARCTION [None]
  - RESPIRATORY DISTRESS [None]
  - SUPRAVENTRICULAR TACHYCARDIA [None]
